FAERS Safety Report 14502668 (Version 1)
Quarter: 2018Q1

REPORT INFORMATION
  Report Type: Spontaneous
  Country: GR (occurrence: GR)
  Receive Date: 20180208
  Receipt Date: 20180208
  Transmission Date: 20180509
  Serious: Yes (Hospitalization, Other)
  Sender: FDA-Public Use
  Company Number: GR-B.I. PHARMACEUTICALS,INC./RIDGEFIELD-2018-BI-006348

PATIENT
  Age: 63 Year
  Sex: Female

DRUGS (4)
  1. SYNJARDY [Suspect]
     Active Substance: EMPAGLIFLOZIN\METFORMIN HYDROCHLORIDE
     Indication: TYPE 2 DIABETES MELLITUS
     Dosage: STRENGTH AND UNIT DOSE: 5+850 MILLIGRAM; DAILY DOSE: 10+170 MILLIGRAM
     Route: 048
     Dates: start: 20180131, end: 20180201
  2. INSULIN [Concomitant]
     Active Substance: INSULIN NOS
     Indication: DIABETES MELLITUS
     Route: 065
  3. OMEGA-3 FATTY ACIDS [Concomitant]
     Active Substance: OMEGA-3 FATTY ACIDS
     Indication: SUPPLEMENTATION THERAPY
     Route: 065
  4. BYDUREON [Concomitant]
     Active Substance: EXENATIDE
     Indication: DIABETES MELLITUS
     Route: 065

REACTIONS (4)
  - Vomiting [Unknown]
  - Diabetic ketoacidosis [Recovering/Resolving]
  - Blood glucose increased [Unknown]
  - Confusional state [Unknown]

NARRATIVE: CASE EVENT DATE: 20180131
